FAERS Safety Report 7268877-2 (Version None)
Quarter: 2011Q1

REPORT INFORMATION
  Report Type: 
  Country: None (occurrence: None)
  Receive Date: 20110201
  Receipt Date: 20110120
  Transmission Date: 20110831
  Serious: Yes (Hospitalization)
  Sender: FDA-Public Use
  Company Number: DE-GILEAD-2011-0035497

PATIENT
  Sex: Male
  Weight: 65 kg

DRUGS (3)
  1. VIRAMUNE [Concomitant]
     Indication: HIV INFECTION
     Dates: start: 20080507
  2. TRUVADA [Suspect]
     Indication: HIV INFECTION
     Route: 048
     Dates: start: 20080521
  3. COTRIM [Concomitant]
     Indication: ANTIFUNGAL PROPHYLAXIS
     Dates: start: 20080521

REACTIONS (5)
  - DUODENITIS [None]
  - POLYSEROSITIS [None]
  - EPSTEIN-BARR VIRUS INFECTION [None]
  - IMMUNE RECONSTITUTION SYNDROME [None]
  - GASTRITIS [None]
